FAERS Safety Report 14551939 (Version 3)
Quarter: 2018Q1

REPORT INFORMATION
  Report Type: Spontaneous
  Country: US (occurrence: US)
  Receive Date: 20180220
  Receipt Date: 20180227
  Transmission Date: 20180509
  Serious: Yes (Death, Other)
  Sender: FDA-Public Use
  Company Number: US-PFIZER INC-2018068887

PATIENT
  Age: 44 Year
  Sex: Male
  Weight: 79.68 kg

DRUGS (2)
  1. MYLOTARG [Suspect]
     Active Substance: GEMTUZUMAB OZOGAMICIN
     Indication: ACUTE MYELOID LEUKAEMIA
     Dosage: 3 MG/M2, EVERY 72 HOURS OR 3 DAYS, FOR THREE DOSES
     Route: 042
     Dates: start: 20180117, end: 20180123
  2. AMICAR [Concomitant]
     Active Substance: AMINOCAPROIC ACID
     Indication: ANTICOAGULANT THERAPY
     Dosage: UNK
     Dates: start: 20180128

REACTIONS (7)
  - Alanine aminotransferase increased [Not Recovered/Not Resolved]
  - Blood bilirubin increased [Not Recovered/Not Resolved]
  - Blood alkaline phosphatase increased [Not Recovered/Not Resolved]
  - Venoocclusive disease [Fatal]
  - Hepatic failure [Fatal]
  - Aspartate aminotransferase increased [Not Recovered/Not Resolved]
  - Organ failure [Fatal]

NARRATIVE: CASE EVENT DATE: 20180128
